FAERS Safety Report 4347392-X (Version None)
Quarter: 2004Q2

REPORT INFORMATION
  Report Type: 
  Country: None (occurrence: None)
  Receive Date: 20040426
  Receipt Date: 20040426
  Transmission Date: 20050107
  Serious: Yes (Other)
  Sender: FDA-Public Use
  Company Number: None

PATIENT
  Age: 21 Year
  Sex: Female
  Weight: 68.0396 kg

DRUGS (1)
  1. EFFEXOR [Suspect]
     Indication: DEPRESSION
     Dosage: 150 MG DAILY ORAL
     Route: 048
     Dates: start: 20020201, end: 20040420

REACTIONS (10)
  - ASTHENIA [None]
  - CHILLS [None]
  - DIZZINESS [None]
  - DRUG DEPENDENCE [None]
  - NAUSEA [None]
  - PAIN [None]
  - PARAESTHESIA [None]
  - PYREXIA [None]
  - SENSORY DISTURBANCE [None]
  - VOMITING [None]
